FAERS Safety Report 23732845 (Version 3)
Quarter: 2024Q2

REPORT INFORMATION
  Report Type: Spontaneous
  Country: US (occurrence: US)
  Receive Date: 20240411
  Receipt Date: 20240621
  Transmission Date: 20240716
  Serious: No
  Sender: FDA-Public Use
  Company Number: US-PFIZER INC-202400082058

PATIENT
  Age: 61 Year
  Sex: Female

DRUGS (6)
  1. IBRANCE [Suspect]
     Active Substance: PALBOCICLIB
     Dosage: 125 MG, CYCLIC (1 TABLET DAILY ON DAYS 1 THROUGH 21 THEN 1 WEEK OFF IN A 28 DAY CYCLE)
     Route: 048
     Dates: start: 20240321
  2. IBRANCE [Suspect]
     Active Substance: PALBOCICLIB
     Dosage: 100 MG, CYCLIC (1 TABLET DAILY ON DAYS 1 THROUGH 21 THEN 1 WEEK OFF)
     Route: 048
     Dates: start: 2024, end: 202405
  3. FASLODEX [Concomitant]
     Active Substance: FULVESTRANT
     Dosage: UNK
  4. LEVOTHYROXINE SODIUM [Concomitant]
     Active Substance: LEVOTHYROXINE SODIUM
     Dosage: UNK
  5. AMLODIPINE BESYLATE [Concomitant]
     Active Substance: AMLODIPINE BESYLATE
     Dosage: UNK
  6. LOSARTAN POTASSIUM [Concomitant]
     Active Substance: LOSARTAN POTASSIUM
     Dosage: UNK

REACTIONS (4)
  - Neoplasm progression [Not Recovered/Not Resolved]
  - White blood cell count decreased [Not Recovered/Not Resolved]
  - Drug hypersensitivity [Unknown]
  - Rash [Unknown]

NARRATIVE: CASE EVENT DATE: 20240501
